FAERS Safety Report 10948126 (Version 1)
Quarter: 2015Q1

REPORT INFORMATION
  Report Type: Spontaneous
  Country: US (occurrence: None)
  Receive Date: 20150320
  Receipt Date: 20150320
  Transmission Date: 20150721
  Serious: Yes (Life-Threatening, Hospitalization)
  Sender: FDA-Public Use
  Company Number: 1713747-2015-99994

PATIENT
  Sex: Female

DRUGS (3)
  1. DELFLEX [Suspect]
     Active Substance: CALCIUM CHLORIDE\DEXTROSE MONOHYDRATE\MAGNESIUM CHLORIDE\SODIUM CHLORIDE\SODIUM LACTATE
     Indication: CHRONIC KIDNEY DISEASE
     Dosage: PERITONEAL DIALYSIS
     Route: 033
     Dates: start: 20150304
  2. LIBERTY CYCLER [Concomitant]
     Active Substance: DEVICE
  3. LIBERTY CYCLER SET [Concomitant]

REACTIONS (3)
  - Myocardial infarction [None]
  - Cerebrovascular accident [None]
  - Fall [None]

NARRATIVE: CASE EVENT DATE: 20150304
